FAERS Safety Report 7297909-0 (Version None)
Quarter: 2011Q1

REPORT INFORMATION
  Report Type: 
  Country: None (occurrence: None)
  Receive Date: 20110217
  Receipt Date: 20101214
  Transmission Date: 20110831
  Serious: No
  Sender: FDA-Public Use
  Company Number: US-KINGPHARMUSA00001-K201001506

PATIENT
  Sex: Female

DRUGS (2)
  1. FLECTOR [Suspect]
     Indication: BACK PAIN
     Dosage: UNK PATCH, UNK
     Route: 061
  2. ADVIL [Concomitant]
     Indication: BACK PAIN
     Route: 048

REACTIONS (2)
  - FLUSHING [None]
  - NERVOUSNESS [None]
